FAERS Safety Report 15964784 (Version 2)
Quarter: 2019Q1

REPORT INFORMATION
  Report Type: Spontaneous
  Country: US (occurrence: US)
  Receive Date: 20190215
  Receipt Date: 20190305
  Transmission Date: 20190418
  Serious: Yes (Other)
  Sender: FDA-Public Use
  Company Number: US-HIKMA PHARMACEUTICALS USA INC.-US-H14001-19-00901

PATIENT
  Age: 56 Year
  Sex: Female

DRUGS (1)
  1. MORPHINE IR [Suspect]
     Active Substance: MORPHINE
     Indication: CANCER PAIN
     Route: 054
     Dates: start: 20180417

REACTIONS (6)
  - Adrenal neoplasm [Not Recovered/Not Resolved]
  - Proctalgia [Not Recovered/Not Resolved]
  - Bladder pain [Not Recovered/Not Resolved]
  - Pain [Not Recovered/Not Resolved]
  - Incorrect route of product administration [Not Recovered/Not Resolved]
  - Abdominal pain [Not Recovered/Not Resolved]

NARRATIVE: CASE EVENT DATE: 201811
